FAERS Safety Report 5593001-1 (Version None)
Quarter: 2008Q1

REPORT INFORMATION
  Report Type: 
  Country: None (occurrence: None)
  Receive Date: 20080116
  Receipt Date: 20080108
  Transmission Date: 20080703
  Serious: Yes (Hospitalization)
  Sender: FDA-Public Use
  Company Number: PHHO2008GB00690

PATIENT
  Age: 37 Year
  Sex: Male

DRUGS (5)
  1. *CGP 57148B* [Suspect]
     Indication: CHRONIC MYELOID LEUKAEMIA
     Dosage: 800 MG, QD
     Route: 048
     Dates: start: 20070517, end: 20070529
  2. *CGP 57148B* [Suspect]
     Dosage: NO TREATMENT
     Route: 048
     Dates: start: 20070530, end: 20070617
  3. *CGP 57148B* [Suspect]
     Dosage: 800 MG, QD
     Route: 048
     Dates: start: 20070618, end: 20070626
  4. *CGP 57148B* [Suspect]
     Dosage: NO TREATMENT
     Dates: start: 20070627, end: 20070709
  5. *CGP 57148B* [Suspect]
     Dosage: 800 MG, QD
     Route: 048
     Dates: start: 20070710, end: 20071016

REACTIONS (2)
  - HEPATIC NECROSIS [None]
  - LIVER FUNCTION TEST ABNORMAL [None]
